FAERS Safety Report 12522587 (Version 1)
Quarter: 2016Q3

REPORT INFORMATION
  Report Type: Spontaneous
  Country: US (occurrence: US)
  Receive Date: 20160701
  Receipt Date: 20160701
  Transmission Date: 20161109
  Serious: Yes (Other)
  Sender: FDA-Public Use
  Company Number: US-UNITED THERAPEUTICS-UNT-2016-009452

PATIENT
  Age: 70 Year
  Sex: Female
  Weight: 48.89 kg

DRUGS (2)
  1. TYVASO [Suspect]
     Active Substance: TREPROSTINIL
     Indication: PULMONARY ARTERIAL HYPERTENSION
     Dosage: 18-72 MICROGRAMS, QID
     Dates: start: 20160303
  2. TYVASO [Suspect]
     Active Substance: TREPROSTINIL
     Dosage: UNK

REACTIONS (5)
  - Cough [Unknown]
  - Muscle tightness [Unknown]
  - Pleural effusion [Unknown]
  - Sinus operation [Unknown]
  - Product use issue [Unknown]

NARRATIVE: CASE EVENT DATE: 201606
